FAERS Safety Report 4611335-1 (Version None)
Quarter: 2005Q2

REPORT INFORMATION
  Report Type: 
  Country: None (occurrence: None)
  Receive Date: 20050311
  Receipt Date: 20041129
  Transmission Date: 20051028
  Serious: No
  Sender: FDA-Public Use
  Company Number: 2004-BP-10870BP

PATIENT
  Age: 68 Year
  Sex: Female

DRUGS (9)
  1. SPIRIVA [Suspect]
     Indication: CHRONIC OBSTRUCTIVE PULMONARY DISEASE
     Dosage: 18 MCG (18 MCG),IH
     Dates: start: 20040801
  2. SPIRIVA [Suspect]
  3. FLOMAX [Concomitant]
  4. EVISTA [Concomitant]
  5. ZOCOR [Concomitant]
  6. ACETYLSALICYLIC ACID SRT [Concomitant]
  7. ALBUTEROL [Concomitant]
  8. PREVACID [Concomitant]
  9. FLONASE [Concomitant]

REACTIONS (1)
  - DRUG INEFFECTIVE [None]
